FAERS Safety Report 7589425-3 (Version None)
Quarter: 2011Q3

REPORT INFORMATION
  Report Type: 
  Country: None (occurrence: None)
  Receive Date: 20110705
  Receipt Date: 20110622
  Transmission Date: 20111222
  Serious: Yes (Hospitalization, Other)
  Sender: FDA-Public Use
  Company Number: US-JNJFOC-20110610670

PATIENT
  Sex: Male

DRUGS (5)
  1. RISPERDAL [Suspect]
     Route: 048
     Dates: start: 20080101, end: 20090101
  2. RISPERDAL [Suspect]
     Indication: SCHIZOPHRENIA
     Route: 048
     Dates: start: 20090101
  3. RISPERDAL CONSTA [Suspect]
     Indication: SCHIZOPHRENIA
     Route: 030
     Dates: start: 20090101
  4. STARLIX [Concomitant]
     Indication: DIABETES MELLITUS
     Route: 048
     Dates: start: 20050101
  5. CLOZAPINE [Concomitant]
     Route: 048

REACTIONS (6)
  - HYDROCEPHALUS [None]
  - CONFUSIONAL STATE [None]
  - THYROID NEOPLASM [None]
  - DROP ATTACKS [None]
  - CEREBRAL VENTRICLE DILATATION [None]
  - HYPOTHALAMO-PITUITARY DISORDER [None]
